FAERS Safety Report 10269293 (Version 4)
Quarter: 2016Q2

REPORT INFORMATION
  Report Type: Report from Study
  Country: BR (occurrence: BR)
  Receive Date: 20140701
  Receipt Date: 20160623
  Transmission Date: 20160815
  Serious: Yes (Hospitalization, Other)
  Sender: FDA-Public Use
  Company Number: BR-ROCHE-1341987

PATIENT
  Age: 64 Year
  Sex: Female
  Weight: 83 kg

DRUGS (9)
  1. PROZEN [Concomitant]
  2. MABTHERA [Suspect]
     Active Substance: RITUXIMAB
     Indication: RHEUMATOID ARTHRITIS
     Dosage: MOST RECENT INFUSION ON 27-JAN-2016. OTHER INFUSION RECEVEID ON 29-JAN-2013, 09-JAN-2014, 28-JAN-201
     Route: 042
     Dates: start: 20130114
  3. AMITRIPTYLINE [Concomitant]
     Active Substance: AMITRIPTYLINE
  4. LOSARTAN. [Concomitant]
     Active Substance: LOSARTAN
     Dosage: ONE TABLET IN THE MORNING AND ONE TABLET AT NIGHT
     Route: 065
  5. INSULIN [Concomitant]
     Active Substance: INSULIN NOS
  6. METFORMIN [Concomitant]
     Active Substance: METFORMIN HYDROCHLORIDE
  7. ARAVA [Concomitant]
     Active Substance: LEFLUNOMIDE
  8. DIAZEPAM. [Concomitant]
     Active Substance: DIAZEPAM
  9. EUTHYROX [Concomitant]
     Active Substance: LEVOTHYROXINE SODIUM
     Dosage: IN THE MORNING
     Route: 065

REACTIONS (11)
  - Arthralgia [Not Recovered/Not Resolved]
  - Arthralgia [Unknown]
  - Musculoskeletal pain [Not Recovered/Not Resolved]
  - Pain in extremity [Unknown]
  - Peripheral swelling [Unknown]
  - Gallbladder disorder [Unknown]
  - Pain in extremity [Not Recovered/Not Resolved]
  - Nasopharyngitis [Not Recovered/Not Resolved]
  - Erysipelas [Unknown]
  - Cholelithiasis [Not Recovered/Not Resolved]
  - Erythema [Recovered/Resolved]

NARRATIVE: CASE EVENT DATE: 201501
